FAERS Safety Report 22390095 (Version 2)
Quarter: 2023Q2

REPORT INFORMATION
  Report Type: Spontaneous
  Country: CN (occurrence: None)
  Receive Date: 20230531
  Receipt Date: 20230606
  Transmission Date: 20230722
  Serious: Yes (Hospitalization, Other)
  Sender: FDA-Public Use
  Company Number: 2023A116660

PATIENT
  Age: 60 Year
  Sex: Male
  Weight: 60 kg

DRUGS (4)
  1. IMFINZI [Suspect]
     Active Substance: DURVALUMAB
     Indication: Small cell lung cancer extensive stage
     Dosage: 500 MG 2 VIALS/21 DAYS1000.0MG EVERY CYCLE
     Route: 042
     Dates: start: 20221021, end: 202303
  2. ETOPOSIDE [Concomitant]
     Active Substance: ETOPOSIDE
  3. CARBOPLATIN [Concomitant]
     Active Substance: CARBOPLATIN
  4. CISPLATIN [Concomitant]
     Active Substance: CISPLATIN

REACTIONS (7)
  - Pneumonia fungal [Recovering/Resolving]
  - Platelet count decreased [Not Recovered/Not Resolved]
  - Urinary bladder haemorrhage [Not Recovered/Not Resolved]
  - Urinary retention [Not Recovered/Not Resolved]
  - Bladder spasm [Not Recovered/Not Resolved]
  - Influenza [Unknown]
  - Pyrexia [Recovering/Resolving]

NARRATIVE: CASE EVENT DATE: 20230507
